FAERS Safety Report 5162648-9 (Version None)
Quarter: 2006Q4

REPORT INFORMATION
  Report Type: 
  Country: None (occurrence: None)
  Receive Date: 20061201
  Receipt Date: 20060901
  Transmission Date: 20070319
  Serious: Yes (Death, Hospitalization)
  Sender: FDA-Public Use
  Company Number: PHMT2006CA01749

PATIENT
  Age: 63 Year
  Sex: Male

DRUGS (5)
  1. COLACE [Concomitant]
     Dosage: 100 MG, BID
  2. CLOZAPINE [Suspect]
     Indication: SCHIZOPHRENIA
     Dosage: UNK, UNK
     Route: 048
     Dates: start: 20060803
  3. CLOZAPINE [Suspect]
     Dosage: 400 MG, QD
     Route: 048
     Dates: start: 20060817, end: 20060820
  4. GLYBURIDE [Concomitant]
     Dosage: 2.5 MG QAM AND 5 MG QPM
  5. SYNTHROID [Concomitant]
     Dosage: 75 UG, QD

REACTIONS (15)
  - ABDOMINAL DISCOMFORT [None]
  - ABDOMINAL DISTENSION [None]
  - CIRCULATORY COLLAPSE [None]
  - CONSTIPATION [None]
  - GENERAL PHYSICAL HEALTH DETERIORATION [None]
  - HIATUS HERNIA [None]
  - HYPOTENSION [None]
  - INTESTINAL OBSTRUCTION [None]
  - ISCHAEMIA [None]
  - LAPAROTOMY [None]
  - PERICARDIAL EFFUSION [None]
  - PSYCHOTIC DISORDER [None]
  - RENAL FAILURE ACUTE [None]
  - SCHIZOPHRENIA, DISORGANISED TYPE [None]
  - SHOCK [None]
